FAERS Safety Report 11308265 (Version 3)
Quarter: 2015Q3

REPORT INFORMATION
  Report Type: Spontaneous
  Country: JP (occurrence: JP)
  Receive Date: 20150724
  Receipt Date: 20150909
  Transmission Date: 20151125
  Serious: Yes (Death)
  Sender: FDA-Public Use
  Company Number: JP-SA-2015SA106385

PATIENT
  Age: 79 Year
  Sex: Male
  Weight: 170 kg

DRUGS (20)
  1. CLEXANE [Suspect]
     Active Substance: ENOXAPARIN SODIUM
     Indication: THROMBOSIS PROPHYLAXIS
     Route: 058
     Dates: start: 20150707, end: 20150709
  2. ELIQUIS [Interacting]
     Active Substance: APIXABAN
     Indication: THROMBOSIS PROPHYLAXIS
     Route: 048
     Dates: start: 20150707, end: 20150709
  3. REBAMIPIDE [Concomitant]
     Active Substance: REBAMIPIDE
     Indication: PROPHYLAXIS
     Dosage: STRENGTH: 100 MG
     Route: 048
     Dates: start: 20150708, end: 20150709
  4. CEFAZOLIN SODIUM. [Concomitant]
     Active Substance: CEFAZOLIN SODIUM
     Indication: INFECTION PROPHYLAXIS
     Route: 041
     Dates: start: 20150706, end: 20150707
  5. ROPION [Concomitant]
     Active Substance: FLURBIPROFEN AXETIL
     Indication: PAIN PROPHYLAXIS
     Dosage: STRENGTH: 50 MG
     Route: 042
     Dates: start: 20150708, end: 20150709
  6. PRIMPERAN [Concomitant]
     Active Substance: METOCLOPRAMIDE HYDROCHLORIDE
     Indication: PROPHYLAXIS
     Dosage: STRENGTH: 10 MG
     Route: 042
     Dates: start: 20150707, end: 20150709
  7. RED BLOOD CELLS [Concomitant]
     Active Substance: HUMAN RED BLOOD CELL
     Dosage: 4 UNITS-2 UNITS-2 UNITS?TRANSFUSION
     Dates: start: 20150618, end: 20150702
  8. ELIQUIS [Interacting]
     Active Substance: APIXABAN
     Indication: ARRHYTHMIA PROPHYLAXIS
     Route: 048
     Dates: start: 20150621, end: 20150703
  9. NITOROL [Concomitant]
     Active Substance: ISOSORBIDE DINITRATE
     Indication: PROPHYLAXIS
     Route: 048
     Dates: start: 20150707, end: 20150709
  10. LUPRAC [Concomitant]
     Active Substance: TORSEMIDE
     Indication: PROPHYLAXIS
     Route: 048
     Dates: start: 20150707, end: 20150709
  11. ALLOPURINOL. [Concomitant]
     Active Substance: ALLOPURINOL
     Indication: HYPERURICAEMIA
     Route: 048
     Dates: start: 20150707, end: 20150709
  12. AMBROXOL HYDROCHLORIDE [Concomitant]
     Active Substance: AMBROXOL HYDROCHLORIDE
     Indication: INSOMNIA
     Route: 048
     Dates: start: 20150707, end: 20150709
  13. ARTIST [Concomitant]
     Active Substance: CARVEDILOL
     Indication: PROPHYLAXIS
     Route: 048
     Dates: start: 20150707, end: 20150709
  14. CARBENIN [Concomitant]
     Active Substance: BETAMIPRON\PANIPENEM
     Indication: INFECTION
     Route: 042
     Dates: start: 20150709, end: 20150709
  15. ELIQUIS [Interacting]
     Active Substance: APIXABAN
     Indication: THROMBOSIS PROPHYLAXIS
     Route: 048
     Dates: start: 20150621, end: 20150703
  16. SPIRONOLACTONE. [Concomitant]
     Active Substance: SPIRONOLACTONE
     Indication: PROPHYLAXIS
     Dosage: STRENGTH:  25MG
     Route: 048
     Dates: start: 20150707, end: 20150709
  17. FUROSEMIDE. [Concomitant]
     Active Substance: FUROSEMIDE
     Indication: PROPHYLAXIS
     Route: 048
     Dates: start: 20150707, end: 20150709
  18. LOXOPROFEN SODIUM [Concomitant]
     Active Substance: LOXOPROFEN SODIUM
     Indication: PAIN PROPHYLAXIS
     Dosage: STRENGTH: 60 MG
     Route: 048
     Dates: start: 20150708, end: 20150709
  19. ELIQUIS [Interacting]
     Active Substance: APIXABAN
     Indication: ARRHYTHMIA PROPHYLAXIS
     Route: 048
     Dates: start: 20150707, end: 20150709
  20. LANIRAPID [Concomitant]
     Active Substance: METILDIGOXIN
     Indication: PROPHYLAXIS
     Route: 048
     Dates: start: 20150707, end: 20150709

REACTIONS (2)
  - Drug interaction [Unknown]
  - Intra-abdominal haemorrhage [Fatal]

NARRATIVE: CASE EVENT DATE: 20150710
